FAERS Safety Report 21191927 (Version 1)
Quarter: 2022Q3

REPORT INFORMATION
  Report Type: Spontaneous
  Country: CN (occurrence: CN)
  Receive Date: 20220809
  Receipt Date: 20220809
  Transmission Date: 20221027
  Serious: Yes (Other)
  Sender: FDA-Public Use
  Company Number: CN-BAYER-2022A107770

PATIENT
  Age: 58 Year
  Sex: Male
  Weight: 57 kg

DRUGS (2)
  1. STIVARGA [Suspect]
     Active Substance: REGORAFENIB
     Indication: Colon cancer
     Dosage: 160 MG, QD
     Route: 048
     Dates: start: 20220702, end: 20220719
  2. STIVARGA [Suspect]
     Active Substance: REGORAFENIB
     Indication: Metastases to liver

REACTIONS (6)
  - Myelosuppression [Recovering/Resolving]
  - Diarrhoea [Recovering/Resolving]
  - Pyrexia [Recovering/Resolving]
  - Platelet count decreased [Recovering/Resolving]
  - White blood cell count decreased [Recovering/Resolving]
  - Neutrophil count decreased [Recovering/Resolving]

NARRATIVE: CASE EVENT DATE: 20220712
